FAERS Safety Report 7612294-X (Version None)
Quarter: 2011Q3

REPORT INFORMATION
  Report Type: 
  Country: None (occurrence: None)
  Receive Date: 20110715
  Receipt Date: 20110705
  Transmission Date: 20111222
  Serious: Yes (Death, Hospitalization)
  Sender: FDA-Public Use
  Company Number: NL-GENENTECH-321214

PATIENT
  Sex: Male
  Weight: 74 kg

DRUGS (11)
  1. DOXORUBICIN HCL [Suspect]
     Indication: B-CELL LYMPHOMA
     Dosage: UNK
     Route: 042
     Dates: start: 20101111
  2. RITUXIMAB [Suspect]
     Indication: B-CELL LYMPHOMA
     Dosage: 710 MG, UNK
     Route: 042
     Dates: start: 20101111
  3. VINCRISTINE [Suspect]
     Indication: B-CELL LYMPHOMA
     Dosage: 1 MG, UNK
     Dates: start: 20101111
  4. DICLOFENAC [Concomitant]
     Indication: PAIN
  5. FLUCONAZOLE [Concomitant]
     Indication: FUNGAL INFECTION
  6. FENAZEPAM [Concomitant]
     Indication: INSOMNIA
  7. PREDNISONE [Suspect]
     Indication: B-CELL LYMPHOMA
     Dosage: 500 MG, UNK
     Dates: start: 20101111
  8. CYCLOPHOSPHAMIDE [Suspect]
     Indication: B-CELL LYMPHOMA
     Dosage: 1430 MG, UNK
     Route: 042
     Dates: start: 20101111
  9. NEUPOGEN [Suspect]
     Indication: B-CELL LYMPHOMA
     Dosage: 6 MG, UNK
  10. VALACYCLOVIR [Concomitant]
     Indication: VIRAL INFECTION
  11. ALLOPURINOL [Concomitant]
     Indication: GOUT

REACTIONS (1)
  - FEBRILE NEUTROPENIA [None]
